FAERS Safety Report 24076135 (Version 1)
Quarter: 2024Q3

REPORT INFORMATION
  Report Type: Report from Study
  Country: CA (occurrence: CA)
  Receive Date: 20240710
  Receipt Date: 20240710
  Transmission Date: 20241016
  Serious: Yes (Other)
  Sender: ABBVIE
  Company Number: CA-ABBVIE-5831005

PATIENT
  Sex: Male

DRUGS (1)
  1. SKYRIZI [Suspect]
     Active Substance: RISANKIZUMAB-RZAA
     Indication: Crohn^s disease
     Route: 058
     Dates: start: 20230110

REACTIONS (8)
  - Ostomy bag placement [Unknown]
  - Fistula discharge [Unknown]
  - Pain [Unknown]
  - Unevaluable event [Unknown]
  - Arthropathy [Not Recovered/Not Resolved]
  - Musculoskeletal disorder [Unknown]
  - Rectal haemorrhage [Recovering/Resolving]
  - Nausea [Unknown]
